FAERS Safety Report 8777674 (Version 2)
Quarter: 2012Q4

REPORT INFORMATION
  Report Type: 
  Country: US (occurrence: US)
  Receive Date: 20120904
  Receipt Date: 20121114
  Transmission Date: 20130627
  Serious: Yes (Hospitalization)
  Sender: FDA-Public Use
  Company Number: US-ELI_LILLY_AND_COMPANY-US201208009295

PATIENT
  Age: 74 Year
  Sex: Female

DRUGS (8)
  1. CYMBALTA [Suspect]
     Indication: PAIN
     Dosage: 60 mg, qd
     Dates: start: 201202
  2. LASIX [Concomitant]
     Dosage: 40 mg, bid
  3. DITROPAN [Concomitant]
     Dosage: UNK, unknown
  4. PRILOSEC [Concomitant]
     Dosage: UNK, unknown
  5. ASPERAN                            /00002701/ [Concomitant]
     Dosage: 81 mg, qd
  6. LISINOPRIL AND HYDROCHLORTIAZIDE [Concomitant]
     Dosage: 1 UNK, UNK
  7. VALIUM [Concomitant]
     Dosage: 5 mg, prn
  8. VENTOLIN HFA [Concomitant]
     Indication: DYSPNOEA
     Dosage: 2 DF, prn
     Route: 055

REACTIONS (6)
  - Abdominal pain [Recovered/Resolved]
  - Diarrhoea [Recovered/Resolved]
  - Hyperhidrosis [Recovered/Resolved]
  - Mass [Not Recovered/Not Resolved]
  - Drug ineffective [Unknown]
  - Adverse event [Unknown]
